FAERS Safety Report 26099438 (Version 1)
Quarter: 2025Q4

REPORT INFORMATION
  Report Type: Spontaneous
  Country: EU (occurrence: EU)
  Receive Date: 20251128
  Receipt Date: 20251128
  Transmission Date: 20260117
  Serious: Yes (Other)
  Sender: JOHNSON AND JOHNSON
  Company Number: EU-JNJFOC-20251167029

PATIENT
  Age: 51 Year
  Sex: Female
  Weight: 54 kg

DRUGS (1)
  1. AMIVANTAMAB [Suspect]
     Active Substance: AMIVANTAMAB
     Indication: Non-small cell lung cancer
     Route: 065

REACTIONS (7)
  - Neutropenia [Not Recovered/Not Resolved]
  - Pyogenic granuloma [Unknown]
  - Dizziness postural [Unknown]
  - Oral herpes [Recovering/Resolving]
  - Dry skin [Not Recovered/Not Resolved]
  - Paronychia [Not Recovered/Not Resolved]
  - Therapeutic product effect incomplete [Unknown]
